FAERS Safety Report 21668982 (Version 1)
Quarter: 2022Q4

REPORT INFORMATION
  Report Type: Spontaneous
  Country: US (occurrence: None)
  Receive Date: 20221201
  Receipt Date: 20221201
  Transmission Date: 20230113
  Serious: Yes (Death)
  Sender: FDA-Public Use
  Company Number: None

PATIENT
  Age: 80 Year
  Sex: Female
  Weight: 72 kg

DRUGS (16)
  1. REVLIMID [Suspect]
     Active Substance: LENALIDOMIDE
     Indication: Plasma cell myeloma
     Dosage: FREQUENCY : DAILY;?
     Route: 048
     Dates: start: 20220127, end: 20221124
  2. ACYCLOVIR [Concomitant]
     Active Substance: ACYCLOVIR
  3. Albuterol 2.5mg [Concomitant]
  4. APIXABAN [Concomitant]
     Active Substance: APIXABAN
  5. CLONIDINE [Concomitant]
     Active Substance: CLONIDINE
  6. daliresp 500mcg [Concomitant]
  7. DEXAMETHASONE [Concomitant]
     Active Substance: DEXAMETHASONE
  8. FUROSEMIDE [Concomitant]
     Active Substance: FUROSEMIDE
  9. LOSARTAN [Concomitant]
     Active Substance: LOSARTAN
  10. METOPROLOL [Concomitant]
     Active Substance: METOPROLOL
  11. MONTELUKAST [Concomitant]
     Active Substance: MONTELUKAST SODIUM
  12. MS contin 30mg [Concomitant]
  13. Odanestron 4mg [Concomitant]
  14. OXYCODONE [Concomitant]
     Active Substance: OXYCODONE
  15. PANTOPRAZOLE SODIUM [Concomitant]
     Active Substance: PANTOPRAZOLE SODIUM
  16. SIMVASTATIN [Concomitant]
     Active Substance: SIMVASTATIN

REACTIONS (1)
  - Death [None]

NARRATIVE: CASE EVENT DATE: 20221124
